FAERS Safety Report 14844715 (Version 1)
Quarter: 2018Q2

REPORT INFORMATION
  Report Type: Spontaneous
  Country: US (occurrence: US)
  Receive Date: 20180504
  Receipt Date: 20180504
  Transmission Date: 20180711
  Serious: Yes (Hospitalization, Other)
  Sender: FDA-Public Use
  Company Number: US-GLAXOSMITHKLINE-US2018075812

PATIENT
  Age: 93 Year
  Sex: Female

DRUGS (7)
  1. SPIRONOLACTONE. [Concomitant]
     Active Substance: SPIRONOLACTONE
  2. TYLENOL [Concomitant]
     Active Substance: ACETAMINOPHEN
  3. XARELTO [Concomitant]
     Active Substance: RIVAROXABAN
  4. HYDROCHLOROTHIAZIDE. [Concomitant]
     Active Substance: HYDROCHLOROTHIAZIDE
  5. CARVEDILOL. [Concomitant]
     Active Substance: CARVEDILOL
  6. ESOMEPRAZOLE [Concomitant]
     Active Substance: ESOMEPRAZOLE
  7. ANORO ELLIPTA [Suspect]
     Active Substance: UMECLIDINIUM BROMIDE\VILANTEROL TRIFENATATE
     Indication: COUGH
     Dosage: 1 PUFF(S), 1D
     Route: 055
     Dates: start: 2017

REACTIONS (7)
  - Vision blurred [Not Recovered/Not Resolved]
  - Visual impairment [Unknown]
  - Eye operation [Unknown]
  - Dysphonia [Not Recovered/Not Resolved]
  - Lacrimation increased [Unknown]
  - Eye haemorrhage [Recovered/Resolved]
  - Product use in unapproved indication [Unknown]

NARRATIVE: CASE EVENT DATE: 201802
